FAERS Safety Report 20647307 (Version 1)
Quarter: 2022Q1

REPORT INFORMATION
  Report Type: Spontaneous
  Country: IE (occurrence: IE)
  Receive Date: 20220329
  Receipt Date: 20220329
  Transmission Date: 20220423
  Serious: Yes (Other)
  Sender: FDA-Public Use
  Company Number: IE-ABBVIE-22K-229-4335277-00

PATIENT
  Age: 26 Year
  Sex: Female

DRUGS (1)
  1. EPILIM [Suspect]
     Active Substance: VALPROATE SODIUM
     Indication: Epilepsy
     Dosage: 333/145 MG
     Route: 048
     Dates: start: 20161011

REACTIONS (2)
  - Seizure [Unknown]
  - Product physical issue [Unknown]

NARRATIVE: CASE EVENT DATE: 20201031
